FAERS Safety Report 9023788 (Version 1)
Quarter: 2013Q1

REPORT INFORMATION
  Report Type: Spontaneous
  Country: US (occurrence: US)
  Receive Date: 20130121
  Receipt Date: 20130121
  Transmission Date: 20140127
  Serious: No
  Sender: FDA-Public Use
  Company Number: US-PFIZER INC-2013023569

PATIENT
  Age: 66 Year
  Sex: Female
  Weight: 68.93 kg

DRUGS (2)
  1. NICOTROL INHALER [Suspect]
     Indication: SMOKING CESSATION THERAPY
     Dosage: UNK, 1X/DAY
  2. NICOTROL INHALER [Suspect]
     Dosage: UNK

REACTIONS (2)
  - Circumstance or information capable of leading to medication error [Unknown]
  - Cough [Unknown]
